FAERS Safety Report 22146835 (Version 3)
Quarter: 2025Q4

REPORT INFORMATION
  Report Type: Spontaneous
  Country: EU (occurrence: EU)
  Receive Date: 20230328
  Receipt Date: 20251023
  Transmission Date: 20260118
  Serious: Yes (Other)
  Sender: JOHNSON AND JOHNSON
  Company Number: EU-JNJFOC-20230353988

PATIENT
  Age: 61 Year
  Sex: Female
  Weight: 103 kg

DRUGS (1)
  1. TECVAYLI [Suspect]
     Active Substance: TECLISTAMAB-CQYV
     Indication: Plasma cell myeloma
     Dosage: DRUG INTERRUPTION DUE TO SEPTIC SHOCK AND MAINTENANCE DOSE AFTER THIS PERIOD
     Route: 065

REACTIONS (2)
  - Septic shock [Unknown]
  - Off label use [Unknown]
